FAERS Safety Report 13321190 (Version 1)
Quarter: 2017Q1

REPORT INFORMATION
  Report Type: Spontaneous
  Country: SE (occurrence: SE)
  Receive Date: 20170310
  Receipt Date: 20170310
  Transmission Date: 20170428
  Serious: Yes (Hospitalization)
  Sender: FDA-Public Use
  Company Number: SE-009507513-1703SWE003228

PATIENT
  Age: 71 Year
  Sex: Male

DRUGS (3)
  1. CLAFORAN [Concomitant]
     Active Substance: CEFOTAXIME SODIUM
  2. CUBICIN [Suspect]
     Active Substance: DAPTOMYCIN
     Indication: STAPHYLOCOCCAL SEPSIS
     Dosage: 800 MG, ONCE (800 MG X1)
     Route: 042
     Dates: start: 20170105, end: 20170208
  3. RIMACTAN [Concomitant]
     Active Substance: RIFAMPIN

REACTIONS (1)
  - Pneumonia [Not Recovered/Not Resolved]

NARRATIVE: CASE EVENT DATE: 20170220
